FAERS Safety Report 18958439 (Version 1)
Quarter: 2021Q1

REPORT INFORMATION
  Report Type: Report from Study
  Country: BR (occurrence: BR)
  Receive Date: 20210302
  Receipt Date: 20210302
  Transmission Date: 20210420
  Serious: Yes (Other)
  Sender: FDA-Public Use
  Company Number: NVSC2021BR009499

PATIENT
  Sex: Female

DRUGS (1)
  1. COSENTYX [Suspect]
     Active Substance: SECUKINUMAB
     Indication: RHEUMATOID ARTHRITIS
     Dosage: 300 MG (SINGLE DOSE)
     Route: 065
     Dates: start: 2020, end: 2020

REACTIONS (15)
  - Pain in extremity [Recovering/Resolving]
  - Malaise [Recovered/Resolved]
  - Cough [Not Recovered/Not Resolved]
  - Dysgeusia [Recovering/Resolving]
  - Pain [Not Recovered/Not Resolved]
  - Memory impairment [Unknown]
  - Dysphonia [Not Recovered/Not Resolved]
  - Product use in unapproved indication [Recovered/Resolved]
  - Insomnia [Recovered/Resolved]
  - Therapeutic product effect incomplete [Unknown]
  - COVID-19 [Not Recovered/Not Resolved]
  - Immunodeficiency [Unknown]
  - Headache [Recovering/Resolving]
  - Asthenia [Recovered/Resolved]
  - Toothache [Recovering/Resolving]

NARRATIVE: CASE EVENT DATE: 2020
